FAERS Safety Report 7937041-3 (Version None)
Quarter: 2011Q4

REPORT INFORMATION
  Report Type: 
  Country: None (occurrence: None)
  Receive Date: 20111123
  Receipt Date: 20111115
  Transmission Date: 20120403
  Serious: Yes (Hospitalization)
  Sender: FDA-Public Use
  Company Number: US-ABBOTT-11P-163-0875096-00

PATIENT
  Sex: Female
  Weight: 65.83 kg

DRUGS (1)
  1. HUMIRA [Suspect]
     Indication: RHEUMATOID ARTHRITIS
     Dates: start: 20090301, end: 20110924

REACTIONS (2)
  - RENAL FAILURE [None]
  - LIVER ABSCESS [None]
